FAERS Safety Report 8702564 (Version 3)
Quarter: 2013Q2

REPORT INFORMATION
  Report Type: Report from Study
  Country: DE (occurrence: DE)
  Receive Date: 20120803
  Receipt Date: 20130415
  Transmission Date: 20140414
  Serious: Yes (Death, Hospitalization)
  Sender: FDA-Public Use
  Company Number: DE-ROCHE-1094443

PATIENT
  Age: 64 Year
  Sex: Female
  Weight: 43 kg

DRUGS (4)
  1. BEVACIZUMAB [Suspect]
     Indication: LUNG ADENOCARCINOMA
     Route: 042
     Dates: start: 20110516, end: 20110619
  2. ALIMTA [Suspect]
     Indication: LUNG ADENOCARCINOMA
     Route: 042
     Dates: start: 20110516, end: 20110619
  3. AMLODIPIN [Concomitant]
     Route: 048
     Dates: start: 20110513
  4. DIOVAN [Concomitant]
     Route: 048
     Dates: start: 20110513

REACTIONS (8)
  - Venous thrombosis limb [Fatal]
  - Renal failure [Fatal]
  - Multi-organ failure [Fatal]
  - Mucosal inflammation [Fatal]
  - Pyrexia [Fatal]
  - Neutropenia [Fatal]
  - Erysipelas [Fatal]
  - Sepsis [Fatal]
